FAERS Safety Report 14091705 (Version 1)
Quarter: 2017Q4

REPORT INFORMATION
  Report Type: Spontaneous
  Country: EG (occurrence: EG)
  Receive Date: 20171016
  Receipt Date: 20171016
  Transmission Date: 20180321
  Serious: Yes (Hospitalization, Disabling)
  Sender: FDA-Public Use
  Company Number: EG-NOVOPROD-566869

PATIENT
  Sex: Male

DRUGS (2)
  1. MIXTARD HUMAN 70/30 [Suspect]
     Active Substance: INSULIN HUMAN
     Indication: DIABETES MELLITUS
     Dosage: 75 U AT MORNING ,55U AT DINNER
     Route: 058
  2. ACTRAPID [Suspect]
     Active Substance: INSULIN HUMAN
     Indication: DIABETES MELLITUS
     Dosage: 65 U AT LUNCH
     Route: 058

REACTIONS (3)
  - Deep vein thrombosis [Unknown]
  - Hemiplegia [Unknown]
  - Blood pressure increased [Unknown]
